FAERS Safety Report 8500997-4 (Version None)
Quarter: 2012Q2

REPORT INFORMATION
  Report Type: 
  Country: None (occurrence: None)
  Receive Date: 20120405
  Receipt Date: 20100402
  Transmission Date: 20120825
  Serious: Yes (Other)
  Sender: FDA-Public Use
  Company Number: PHEH2010US02188

PATIENT
  Age: 62 Year
  Sex: Female
  Weight: 89.3 kg

DRUGS (2)
  1. PREDNISONE TAB [Concomitant]
  2. RECLAST [Suspect]
     Indication: OSTEOPOROSIS
     Dosage: 5 MG YEARLY, INTRAVENOUS
     Route: 042

REACTIONS (4)
  - OSTEONECROSIS OF JAW [None]
  - BONE DISORDER [None]
  - PAIN [None]
  - ORAL DISORDER [None]
